FAERS Safety Report 9832676 (Version 2)
Quarter: 2014Q1

REPORT INFORMATION
  Report Type: Report from Study
  Country: US (occurrence: US)
  Receive Date: 20140121
  Receipt Date: 20140317
  Transmission Date: 20141002
  Serious: Yes (Hospitalization, Other)
  Sender: FDA-Public Use
  Company Number: US-PURDUE-USA-2014-0110343

PATIENT
  Age: 56 Year
  Sex: Male

DRUGS (2)
  1. OXY CR TAB [Suspect]
     Indication: SURGERY
     Dosage: UNK
     Route: 048
     Dates: start: 2001
  2. OXY CR TAB [Suspect]
     Indication: PAIN
     Dosage: UNK
     Route: 048
     Dates: start: 20131218

REACTIONS (6)
  - Unresponsive to stimuli [Recovered/Resolved]
  - Scrotal infection [Recovered/Resolved]
  - Sepsis [Recovered/Resolved]
  - Mental status changes [Recovered/Resolved]
  - Fall [Unknown]
  - Contusion [Unknown]
